FAERS Safety Report 4482133-7 (Version None)
Quarter: 2004Q4

REPORT INFORMATION
  Report Type: 
  Country: None (occurrence: None)
  Receive Date: 20041020
  Receipt Date: 20041008
  Transmission Date: 20050328
  Serious: Yes (Hospitalization)
  Sender: FDA-Public Use
  Company Number: 209423

PATIENT
  Age: 35 Year
  Sex: Male
  Weight: 58 kg

DRUGS (2)
  1. MABTHERA (RITUXIMAB) CONC FOR  FOR SOLUTIONFOR INFUSION [Suspect]
     Indication: LYMPHOMA
     Dosage: 600 MG, INTRAVENOUS
     Route: 042
     Dates: start: 20040906, end: 20040906
  2. MABTHERA (RITUXIMAB) CONC FOR  FOR SOLUTIONFOR INFUSION [Suspect]
     Indication: LYMPHOMA
     Dosage: 600 MG, INTRAVENOUS
     Route: 042
     Dates: start: 20040929, end: 20040929

REACTIONS (4)
  - DYSPHASIA [None]
  - FACIAL NERVE DISORDER [None]
  - HYPERAESTHESIA [None]
  - VISUAL DISTURBANCE [None]
